FAERS Safety Report 22541877 (Version 1)
Quarter: 2023Q2

REPORT INFORMATION
  Report Type: Spontaneous
  Country: US (occurrence: None)
  Receive Date: 20230608
  Receipt Date: 20230608
  Transmission Date: 20230722
  Serious: Yes (Life-Threatening, Hospitalization)
  Sender: FDA-Public Use
  Company Number: None

PATIENT
  Age: 67 Year
  Sex: Male

DRUGS (2)
  1. WARFARIN [Suspect]
     Active Substance: WARFARIN
  2. ASPIRIN [Suspect]
     Active Substance: ASPIRIN

REACTIONS (2)
  - Intraventricular haemorrhage [None]
  - Hypertension [None]

NARRATIVE: CASE EVENT DATE: 20230403
